FAERS Safety Report 9314708 (Version 1)
Quarter: 2013Q2

REPORT INFORMATION
  Report Type: Spontaneous
  Country: FR (occurrence: FR)
  Receive Date: 20130529
  Receipt Date: 20130529
  Transmission Date: 20140414
  Serious: Yes (Death, Hospitalization, Other)
  Sender: FDA-Public Use
  Company Number: FR-ROCHE-1203319

PATIENT
  Age: 65 Year
  Sex: Female

DRUGS (13)
  1. CYMEVAN [Suspect]
     Indication: PRODUCT USED FOR UNKNOWN INDICATION
     Route: 048
  2. CEFEPIME [Suspect]
     Indication: PRODUCT USED FOR UNKNOWN INDICATION
     Route: 042
  3. CEFTAZIDIME [Suspect]
     Indication: PRODUCT USED FOR UNKNOWN INDICATION
     Route: 042
  4. CANCIDAS [Suspect]
     Indication: PRODUCT USED FOR UNKNOWN INDICATION
     Route: 065
  5. FLAGYL [Suspect]
     Indication: PRODUCT USED FOR UNKNOWN INDICATION
     Route: 065
  6. EUPANTOL [Suspect]
     Indication: PRODUCT USED FOR UNKNOWN INDICATION
     Route: 065
  7. AMIKACINE [Concomitant]
  8. LINEZOLID [Concomitant]
  9. NOREPINEPHRINE [Concomitant]
  10. METHYLPREDNISOLONE [Concomitant]
  11. ALFENTANIL [Concomitant]
  12. PIPERACILLINE [Concomitant]
  13. ACICLOVIR [Concomitant]

REACTIONS (1)
  - Toxic epidermal necrolysis [Fatal]
